FAERS Safety Report 21912495 (Version 1)
Quarter: 2023Q1

REPORT INFORMATION
  Report Type: Spontaneous
  Country: US (occurrence: US)
  Receive Date: 20230125
  Receipt Date: 20230125
  Transmission Date: 20230417
  Serious: No
  Sender: FDA-Public Use
  Company Number: US-ALLERGAN-2226186US

PATIENT
  Age: 48 Year
  Sex: Female
  Weight: 104.3 kg

DRUGS (15)
  1. BOTOX [Suspect]
     Active Substance: ONABOTULINUMTOXINA
     Indication: Migraine
     Dosage: 33 UNITS, SINGLE
     Route: 058
     Dates: start: 2018, end: 2018
  2. METOCLOPRAMIDE [Concomitant]
     Active Substance: METOCLOPRAMIDE
     Indication: Migraine
     Route: 048
     Dates: start: 2013
  3. BUPROPION [Concomitant]
     Active Substance: BUPROPION
     Indication: Depression
     Route: 048
     Dates: start: 2013
  4. LOSARTAN [Concomitant]
     Active Substance: LOSARTAN
     Indication: Migraine
     Route: 048
     Dates: start: 2013
  5. CYCLOBENZAPRINE [Concomitant]
     Active Substance: CYCLOBENZAPRINE
     Indication: Muscle spasms
     Route: 048
     Dates: start: 2013
  6. MELOXICAM [Concomitant]
     Active Substance: MELOXICAM
     Indication: Migraine
     Route: 048
     Dates: start: 2013
  7. ESTRADIOL [Concomitant]
     Active Substance: ESTRADIOL
     Indication: Migraine
     Route: 048
     Dates: start: 2013
  8. VERAPAMIL [Concomitant]
     Active Substance: VERAPAMIL HYDROCHLORIDE
     Indication: Sleep disorder
     Route: 048
     Dates: start: 2013
  9. VITAMINS NOS [Concomitant]
     Active Substance: VITAMINS
     Indication: Migraine
     Route: 048
     Dates: start: 2013
  10. MAGNESIUM [Concomitant]
     Active Substance: MAGNESIUM
     Indication: Supplementation therapy
     Route: 048
     Dates: start: 2013
  11. VITAMIN B12 [Concomitant]
     Active Substance: CYANOCOBALAMIN
     Indication: Supplementation therapy
     Route: 048
     Dates: start: 2013
  12. CO-Q10+VITAMIN D3 [Concomitant]
     Indication: Supplementation therapy
     Route: 048
     Dates: start: 2013
  13. IBUPROFEN [Concomitant]
     Active Substance: IBUPROFEN
     Indication: Muscle tightness
     Dates: start: 2013
  14. CHOLECALCIFEROL [Concomitant]
     Active Substance: CHOLECALCIFEROL
     Indication: Supplementation therapy
     Route: 048
     Dates: start: 2013
  15. ASPIRIN [Concomitant]
     Active Substance: ASPIRIN
     Indication: Blood disorder prophylaxis
     Route: 048
     Dates: start: 2013

REACTIONS (2)
  - Incorrect route of product administration [Unknown]
  - Headache [Unknown]

NARRATIVE: CASE EVENT DATE: 20180101
